FAERS Safety Report 6541726-3 (Version None)
Quarter: 2010Q1

REPORT INFORMATION
  Report Type: 
  Country: None (occurrence: None)
  Receive Date: 20100119
  Receipt Date: 20100118
  Transmission Date: 20100710
  Serious: Yes (Death, Other)
  Sender: FDA-Public Use
  Company Number: GB-ELI_LILLY_AND_COMPANY-GB201001002881

PATIENT
  Sex: Male

DRUGS (3)
  1. ALIMTA [Suspect]
     Indication: LUNG ADENOCARCINOMA METASTATIC
     Dosage: 500 MG/M2, OTHER
     Route: 042
     Dates: start: 20091015
  2. GEMCITABINE HCL [Suspect]
     Indication: LUNG ADENOCARCINOMA METASTATIC
     Dates: start: 20090101, end: 20090301
  3. CARBOPLATIN [Concomitant]
     Indication: LUNG ADENOCARCINOMA METASTATIC

REACTIONS (3)
  - DEATH [None]
  - DRUG TOLERANCE DECREASED [None]
  - MALIGNANT NEOPLASM PROGRESSION [None]
